FAERS Safety Report 18278075 (Version 2)
Quarter: 2020Q4

REPORT INFORMATION
  Report Type: Report from Study
  Country: None (occurrence: US)
  Receive Date: 20200917
  Receipt Date: 20201021
  Transmission Date: 20210113
  Serious: Yes (Hospitalization, Other)
  Sender: FDA-Public Use
  Company Number: US-ABBVIE-20K-163-3494060-00

PATIENT
  Sex: Female

DRUGS (2)
  1. HUMIRA [Suspect]
     Active Substance: ADALIMUMAB
     Route: 058
     Dates: start: 20200709
  2. HUMIRA [Suspect]
     Active Substance: ADALIMUMAB
     Indication: CROHN^S DISEASE
     Route: 058
     Dates: start: 2016, end: 2017

REACTIONS (22)
  - Gait disturbance [Recovering/Resolving]
  - Depression [Unknown]
  - Spinal fracture [Unknown]
  - Cardiac disorder [Unknown]
  - Spinal fracture [Unknown]
  - Depressed mood [Unknown]
  - Nausea [Unknown]
  - Crohn^s disease [Unknown]
  - Supraventricular tachycardia [Unknown]
  - Insomnia [Unknown]
  - Constipation [Recovering/Resolving]
  - Adverse food reaction [Unknown]
  - Anxiety [Unknown]
  - Weight increased [Unknown]
  - Back pain [Recovering/Resolving]
  - Abnormal dreams [Unknown]
  - Skin cancer [Unknown]
  - Middle insomnia [Not Recovered/Not Resolved]
  - Abnormal dreams [Unknown]
  - Loss of personal independence in daily activities [Unknown]
  - Cardiovascular disorder [Unknown]
  - Diarrhoea [Unknown]

NARRATIVE: CASE EVENT DATE: 2020
